FAERS Safety Report 7410461-1 (Version None)
Quarter: 2011Q2

REPORT INFORMATION
  Report Type: 
  Country: None (occurrence: None)
  Receive Date: 20110413
  Receipt Date: 20110404
  Transmission Date: 20111010
  Serious: Yes (Hospitalization)
  Sender: FDA-Public Use
  Company Number: US-BIOGENIDEC-2011BI012788

PATIENT
  Age: 71 Year
  Sex: Male

DRUGS (2)
  1. TYSABRI [Suspect]
     Indication: MULTIPLE SCLEROSIS
     Route: 042
     Dates: start: 20100812
  2. TYSABRI [Suspect]
     Route: 042
     Dates: start: 20070307, end: 20090511

REACTIONS (2)
  - CORONARY ARTERY OCCLUSION [None]
  - ARTHRALGIA [None]
